FAERS Safety Report 26047749 (Version 1)
Quarter: 2025Q4

REPORT INFORMATION
  Report Type: Spontaneous
  Country: EU (occurrence: EU)
  Receive Date: 20251114
  Receipt Date: 20251114
  Transmission Date: 20260118
  Serious: Yes (Other)
  Sender: TEVA
  Company Number: None

PATIENT
  Age: 70 Year
  Sex: Male
  Weight: 73.2 kg

DRUGS (2)
  1. EZETIMIBE [Suspect]
     Active Substance: EZETIMIBE
     Indication: Hypercholesterolaemia
     Dosage: 10MG X 1/DAY
     Route: 048
     Dates: end: 20251005
  2. PRAVASTATIN [Suspect]
     Active Substance: PRAVASTATIN
     Indication: Hypercholesterolaemia
     Dosage: 20MG X 1/DAY, PRAVASTATIN SODIUM
     Route: 048
     Dates: end: 20251006

REACTIONS (2)
  - Rhabdomyolysis [Recovered/Resolved]
  - Condition aggravated [Recovered/Resolved]

NARRATIVE: CASE EVENT DATE: 20251004
